FAERS Safety Report 9254712 (Version 1)
Quarter: 2013Q2

REPORT INFORMATION
  Report Type: Spontaneous
  Country: US (occurrence: None)
  Receive Date: 20130422
  Receipt Date: 20130422
  Transmission Date: 20140414
  Serious: Yes (Hospitalization)
  Sender: FDA-Public Use
  Company Number: None

PATIENT
  Age: 65 Year
  Sex: Male

DRUGS (2)
  1. MORPHINE [Suspect]
     Indication: PAIN
     Dosage: 30 MG  BID  PO
     Route: 048
     Dates: start: 20120917
  2. DIAZEPAM [Suspect]
     Indication: ANXIETY
     Dosage: 10 MG  AT BEDTIME  PO
     Route: 048
     Dates: start: 20120809

REACTIONS (6)
  - Wrong technique in drug usage process [None]
  - Mental status changes [None]
  - Renal failure acute [None]
  - Confusional state [None]
  - Sedation [None]
  - Drug level increased [None]
